FAERS Safety Report 6639283-6 (Version None)
Quarter: 2010Q1

REPORT INFORMATION
  Report Type: 
  Country: None (occurrence: None)
  Receive Date: 20100315
  Receipt Date: 20100225
  Transmission Date: 20100710
  Serious: Yes (Death)
  Sender: FDA-Public Use
  Company Number: 2010VX000046

PATIENT
  Age: 47 Year
  Sex: Female

DRUGS (6)
  1. DIASTAT [Suspect]
     Indication: DRUG USE FOR UNKNOWN INDICATION
  2. ENVENOMATION, CROTALID [Suspect]
     Indication: DRUG USE FOR UNKNOWN INDICATION
  3. VERAPAMIL [Suspect]
     Indication: DRUG USE FOR UNKNOWN INDICATION
  4. HYDROCODONE [Suspect]
     Indication: DRUG USE FOR UNKNOWN INDICATION
  5. OXYCODONE [Suspect]
     Indication: DRUG USE FOR UNKNOWN INDICATION
  6. MIRTAZAPINE [Suspect]
     Indication: DRUG USE FOR UNKNOWN INDICATION

REACTIONS (10)
  - ASCITES [None]
  - ASTHENIA [None]
  - DYSPNOEA [None]
  - ECCHYMOSIS [None]
  - HEADACHE [None]
  - HEPATIC CIRRHOSIS [None]
  - HEPATIC STEATOSIS [None]
  - PAIN IN EXTREMITY [None]
  - PLEURAL EFFUSION [None]
  - POISONING [None]
